FAERS Safety Report 4579893-3 (Version None)
Quarter: 2005Q1

REPORT INFORMATION
  Report Type: 
  Country: None (occurrence: None)
  Receive Date: 20050210
  Receipt Date: 20050125
  Transmission Date: 20050727
  Serious: Yes (Other)
  Sender: FDA-Public Use
  Company Number: 2005019556

PATIENT
  Age: 54 Year
  Sex: Male

DRUGS (4)
  1. DOXAZOSIN MESYLATE [Suspect]
     Indication: HYPERTENSION
     Dosage: 0.25 MG (DAILY), ORAL
     Route: 048
     Dates: start: 20041117, end: 20041123
  2. DOXAZOSIN MESYLATE [Suspect]
     Indication: HYPERTENSION
     Dosage: 0.25 MG (DAILY), ORAL
     Route: 048
     Dates: start: 20041124
  3. PRAVASTATIN SODIUM [Concomitant]
  4. BEZAFIBRAE (BEZAFIBRATE) [Concomitant]

REACTIONS (3)
  - BLOOD GLUCOSE INCREASED [None]
  - BLOOD TRIGLYCERIDES INCREASED [None]
  - DRUG EFFECT DECREASED [None]
